FAERS Safety Report 7701166-8 (Version None)
Quarter: 2011Q3

REPORT INFORMATION
  Report Type: 
  Country: None (occurrence: None)
  Receive Date: 20110817
  Receipt Date: 20110803
  Transmission Date: 20111222
  Serious: Yes (Other)
  Sender: FDA-Public Use
  Company Number: TPA2011A04635

PATIENT
  Age: 71 Year
  Sex: Male
  Weight: 78.9259 kg

DRUGS (8)
  1. SIMVASTATIN(SIMVASTATN) [Concomitant]
  2. MULTIVITAMIN (ERGOCALCIFEROL, ASORBIC ACID, PYRIDOXINE HYDROCHLORIDE, [Concomitant]
  3. CARVEDILOL [Concomitant]
  4. BYETTA [Concomitant]
  5. ASPIRIN [Concomitant]
  6. ACTOS [Suspect]
     Indication: TYPE 2 DIABETES MELLITUS
     Dosage: 45 MG, 1 IN 1 D, PER ORAL
     Route: 048
     Dates: start: 20020125, end: 20110802
  7. GLIPIZIDE XL(GLIPIZIDE) [Concomitant]
  8. CALCIUM CARBONATE [Concomitant]

REACTIONS (2)
  - HAEMATURIA [None]
  - URINARY TRACT INFECTION [None]
